FAERS Safety Report 7080376-X (Version None)
Quarter: 2010Q4

REPORT INFORMATION
  Report Type: 
  Country: None (occurrence: None)
  Receive Date: 20101025
  Receipt Date: 20101008
  Transmission Date: 20110411
  Serious: Yes (Hospitalization, Other)
  Sender: FDA-Public Use
  Company Number: 2010P1001913

PATIENT
  Age: 65 Year
  Sex: Male
  Weight: 101.6057 kg

DRUGS (4)
  1. FENTANYL [Suspect]
     Indication: CANCER PAIN
     Dosage: 50 MCG/HR;Q72H;TDER
     Route: 062
     Dates: start: 20100208, end: 20101008
  2. FENTANYL-25 [Suspect]
     Indication: NEOPLASM MALIGNANT
     Dosage: 25 MCG/HR;Q72H;TDER
     Route: 062
     Dates: start: 20100208, end: 20101008
  3. CON MEDS [Concomitant]
  4. PREV MEDS [Concomitant]

REACTIONS (3)
  - BODY TEMPERATURE INCREASED [None]
  - FLUID RETENTION [None]
  - VOMITING [None]
